FAERS Safety Report 11351423 (Version 1)
Quarter: 2015Q3

REPORT INFORMATION
  Report Type: Spontaneous
  Country: US (occurrence: US)
  Receive Date: 20150807
  Receipt Date: 20150807
  Transmission Date: 20151125
  Serious: No
  Sender: FDA-Public Use
  Company Number: US-JNJFOC-20150404476

PATIENT
  Age: 40 Year
  Sex: Female
  Weight: 52.16 kg

DRUGS (6)
  1. WOMENS ROGAINE [Suspect]
     Active Substance: MINOXIDIL
     Route: 061
  2. PROBIOTIC [Concomitant]
     Active Substance: PROBIOTICS NOS
     Indication: DYSPEPSIA
     Dosage: 1 TIME, INTERVAL: FEW MONTHS
     Route: 065
  3. MULTIVITAMINS, OTHER COMBINATIONS [Concomitant]
     Indication: VITAMIN SUPPLEMENTATION
     Dosage: 4 TIMES, INTERVAL: FEW MONTHS
     Route: 065
  4. MULTIVITAMINS, OTHER COMBINATIONS [Concomitant]
     Indication: VITAMIN SUPPLEMENTATION
     Dosage: 3 TIMES, INTERVAL: FEW MONTHS
     Route: 065
  5. WOMENS ROGAINE [Suspect]
     Active Substance: MINOXIDIL
     Indication: ALOPECIA
     Dosage: 1 TIME, VIA DOSING CUP
     Route: 061
     Dates: start: 20150301
  6. PRILOSEC [Concomitant]
     Active Substance: OMEPRAZOLE MAGNESIUM
     Indication: GASTROOESOPHAGEAL REFLUX DISEASE
     Dosage: 1 TIME, INTERVAL: SEVERAL DAYS
     Route: 065

REACTIONS (1)
  - Feeling hot [Recovered/Resolved]
